FAERS Safety Report 15703495 (Version 3)
Quarter: 2019Q2

REPORT INFORMATION
  Report Type: Spontaneous
  Country: US (occurrence: US)
  Receive Date: 20181210
  Receipt Date: 20190418
  Transmission Date: 20190711
  Serious: No
  Sender: FDA-Public Use
  Company Number: US-PFIZER INC-2018499584

PATIENT
  Age: 80 Year
  Sex: Female
  Weight: 79.82 kg

DRUGS (3)
  1. MORPHINE SULFATE. [Suspect]
     Active Substance: MORPHINE SULFATE
     Dosage: UNK
  2. CODEINE [Suspect]
     Active Substance: CODEINE
     Dosage: UNK
  3. ERYTHROMYCIN. [Suspect]
     Active Substance: ERYTHROMYCIN
     Dosage: UNK

REACTIONS (1)
  - Drug hypersensitivity [Unknown]
